FAERS Safety Report 9781351 (Version 1)
Quarter: 2013Q4

REPORT INFORMATION
  Report Type: Spontaneous
  Country: GB (occurrence: GB)
  Receive Date: 20131224
  Receipt Date: 20131224
  Transmission Date: 20140711
  Serious: Yes (Other)
  Sender: FDA-Public Use
  Company Number: GB-OTSUKA-US-2013-12418

PATIENT
  Sex: 0

DRUGS (1)
  1. BUSULFEX [Suspect]
     Indication: MYELOPROLIFERATIVE DISORDER

REACTIONS (4)
  - Acute graft versus host disease [Unknown]
  - Chronic graft versus host disease [Unknown]
  - Transplant failure [Unknown]
  - Recurrent cancer [Unknown]
